FAERS Safety Report 6593786-1 (Version None)
Quarter: 2010Q1

REPORT INFORMATION
  Report Type: 
  Country: None (occurrence: None)
  Receive Date: 20100222
  Receipt Date: 20100215
  Transmission Date: 20100710
  Serious: Yes (Death, Hospitalization, Other)
  Sender: FDA-Public Use
  Company Number: GB-BAYER-201013648GPV

PATIENT
  Age: 43 Year
  Sex: Female
  Weight: 88 kg

DRUGS (14)
  1. FLUDARA [Suspect]
     Indication: ACUTE MYELOID LEUKAEMIA
     Dosage: CYCLE 3, 30 MG/M2 X 5/7
     Route: 042
  2. ARA-C [Suspect]
     Indication: ACUTE MYELOID LEUKAEMIA
     Dosage: CYCLE 1 STANDARD AML PROTOCOL
     Route: 042
  3. ARA-C [Suspect]
     Dosage: CYCLE 4
     Route: 042
     Dates: start: 20090921
  4. ARA-C [Suspect]
     Dosage: CYCLE 3, 2 G/M2 X 5/7
     Route: 042
  5. ARA-C [Suspect]
     Dosage: CYCLE 2
     Route: 042
  6. NEUPOGEN [Suspect]
     Indication: ACUTE MYELOID LEUKAEMIA
     Dosage: 30 MU/DAY TILL COUNT RECOVERY
     Route: 058
  7. ZAVEDOS [Suspect]
     Indication: ACUTE MYELOID LEUKAEMIA
     Dosage: DAY 1-3
     Route: 042
  8. EVOLTRA [Suspect]
     Indication: ACUTE MYELOID LEUKAEMIA
     Dosage: CYCLE 2
  9. EVOLTRA [Suspect]
     Dosage: CYCLE 4
     Dates: start: 20090921
  10. MYLOTARG [Suspect]
     Indication: ACUTE MYELOID LEUKAEMIA
     Route: 042
     Dates: start: 20090921, end: 20090921
  11. TAZOBACTAM [Concomitant]
  12. VALTREX [Concomitant]
  13. AMBISOME [Concomitant]
  14. RASBURICASE [Concomitant]

REACTIONS (6)
  - DYSPNOEA [None]
  - METABOLIC ACIDOSIS [None]
  - MULTI-ORGAN FAILURE [None]
  - PERICARDITIS [None]
  - RENAL IMPAIRMENT [None]
  - SEPTIC SHOCK [None]
